FAERS Safety Report 6996263-9 (Version None)
Quarter: 2010Q3

REPORT INFORMATION
  Report Type: 
  Country: None (occurrence: None)
  Receive Date: 20100918
  Receipt Date: 20090114
  Transmission Date: 20110219
  Serious: No
  Sender: FDA-Public Use
  Company Number: US-WYE-H07713209

PATIENT
  Sex: Female
  Weight: 67.19 kg

DRUGS (5)
  1. PREMPRO [Suspect]
     Indication: HOT FLUSH
     Dosage: 0.3 MG/1.5MG
     Route: 048
     Dates: start: 20080101
  2. FLUOXETINE [Concomitant]
  3. BONIVA [Concomitant]
  4. ADVAIR DISKUS 100/50 [Concomitant]
  5. ZOCOR [Concomitant]

REACTIONS (3)
  - DIZZINESS [None]
  - HEADACHE [None]
  - PAIN IN EXTREMITY [None]
